FAERS Safety Report 20102786 (Version 2)
Quarter: 2022Q1

REPORT INFORMATION
  Report Type: Spontaneous
  Country: CA (occurrence: CA)
  Receive Date: 20211123
  Receipt Date: 20220214
  Transmission Date: 20220423
  Serious: Yes (Death, Hospitalization, Other)
  Sender: FDA-Public Use
  Company Number: CA-TAKEDA-2021TUS073897

PATIENT
  Age: 72 Year
  Sex: Male
  Weight: 87.7 kg

DRUGS (3)
  1. HIZENTRA [Suspect]
     Active Substance: HUMAN IMMUNOGLOBULIN G
     Indication: Secondary immunodeficiency
     Dosage: 7.0 GRAM, 1/WEEK
     Route: 058
  2. HIZENTRA [Suspect]
     Active Substance: HUMAN IMMUNOGLOBULIN G
     Dosage: 7 GRAM, 1/WEEK
     Route: 065
     Dates: start: 2020
  3. VISKEN [Concomitant]
     Active Substance: PINDOLOL
     Route: 065

REACTIONS (6)
  - Prostate cancer [Fatal]
  - Dyspnoea [Fatal]
  - Heart rate increased [Fatal]
  - Lung neoplasm malignant [Fatal]
  - Lymphoma [Fatal]
  - Drug ineffective [Fatal]

NARRATIVE: CASE EVENT DATE: 20210101
